FAERS Safety Report 14770481 (Version 1)
Quarter: 2018Q2

REPORT INFORMATION
  Report Type: Spontaneous
  Country: JP (occurrence: JP)
  Receive Date: 20180417
  Receipt Date: 20180417
  Transmission Date: 20180711
  Serious: Yes (Other)
  Sender: FDA-Public Use
  Company Number: JP-PFIZER INC-2018149693

PATIENT
  Age: 80 Year
  Sex: Female

DRUGS (4)
  1. LYRICA [Suspect]
     Active Substance: PREGABALIN
     Indication: PAIN IN EXTREMITY
     Dosage: UNK, ALTERNATE DAY
     Route: 048
     Dates: start: 20180331
  2. LINZESS [Suspect]
     Active Substance: LINACLOTIDE
     Dosage: UNK
     Route: 048
  3. YODEL [Suspect]
     Active Substance: SENNA LEAF
     Dosage: UNK
     Route: 048
  4. LAXOBERON [Suspect]
     Active Substance: SODIUM PICOSULFATE
     Dosage: UNK
     Route: 048

REACTIONS (10)
  - Dizziness [Unknown]
  - Heart rate increased [Unknown]
  - Hyperhidrosis [Unknown]
  - Mental impairment [Not Recovered/Not Resolved]
  - Diarrhoea [Unknown]
  - Muscular weakness [Unknown]
  - Gait inability [Unknown]
  - Anxiety [Unknown]
  - Malaise [Unknown]
  - Memory impairment [Unknown]

NARRATIVE: CASE EVENT DATE: 20180407
